FAERS Safety Report 10618172 (Version 2)
Quarter: 2015Q2

REPORT INFORMATION
  Report Type: Report from Study
  Country: CN (occurrence: CN)
  Receive Date: 20141202
  Receipt Date: 20150526
  Transmission Date: 20150821
  Serious: Yes (Hospitalization, Other)
  Sender: FDA-Public Use
  Company Number: CN-BRISTOL-MYERS SQUIBB COMPANY-21650916

PATIENT
  Age: 72 Year
  Sex: Male

DRUGS (8)
  1. BLINDED PACLITAXEL [Suspect]
     Active Substance: PACLITAXEL
     Indication: NON-SMALL CELL LUNG CANCER
     Dosage: 1APR-1APR14:2CYCLE  23AP-APR14:300MG 3CY  19MA-19MAY14:4CY  5JU-5JUN14:5CY  27JU-27JUN14:330MG 6CY
     Route: 042
     Dates: start: 20140311, end: 20140311
  2. BLINDED CARBOPLATIN [Suspect]
     Active Substance: CARBOPLATIN
     Indication: NON-SMALL CELL LUNG CANCER
     Dosage: 1APR-1APR14:2CYCLE  23APR-23APR14: 3CY  19MAY-19MAY14:4CY  5JUN-5JUN14:5CY  27JUN-27JUN:1000MG 6CY
     Route: 042
     Dates: start: 20140311, end: 20140311
  3. BLINDED IPILIMUMAB [Suspect]
     Active Substance: IPILIMUMAB
     Indication: NON-SMALL CELL LUNG CANCER
     Dosage: 1APR-1APR14:2CYCLE  23AP-APR14:300MG 3CY  19MA-19MAY14:4CY  5JU-5JUN14:5CY  27JU-27JUN14:330MG 6CY
     Route: 042
     Dates: start: 20140311, end: 20140311
  4. BLINDED IPILIMUMAB [Suspect]
     Active Substance: IPILIMUMAB
     Indication: NON-SMALL CELL LUNG CANCER
     Dosage: 19MAY-19MAY14:158ML 4CYCLE  5JUN-5JUN14:155ML 5CYCLE  27JUN-27JUN14:159ML 6CYCLE+158ML
     Route: 042
     Dates: start: 20140423, end: 20140423
  5. BLINDED IPILIMUMAB [Suspect]
     Active Substance: IPILIMUMAB
     Indication: NON-SMALL CELL LUNG CANCER
     Dosage: 1APR-1APR14:2CYCLE  23APR-23APR14: 3CY  19MAY-19MAY14:4CY  5JUN-5JUN14:5CY  27JUN-27JUN:1000MG 6CY
     Route: 042
     Dates: start: 20140311, end: 20140311
  6. PLACEBO [Suspect]
     Active Substance: UNSPECIFIED INGREDIENT
     Indication: NON-SMALL CELL LUNG CANCER
     Dosage: 1APR-1APR14:2CYCLE  23APR-23APR14: 3CY  19MAY-19MAY14:4CY  5JUN-5JUN14:5CY  27JUN-27JUN:1000MG 6CY
     Route: 042
     Dates: start: 20140311, end: 20140311
  7. PLACEBO [Suspect]
     Active Substance: UNSPECIFIED INGREDIENT
     Indication: NON-SMALL CELL LUNG CANCER
     Dosage: 19MAY-19MAY14:158ML 4CYCLE  5JUN-5JUN14:155ML 5CYCLE  27JUN-27JUN14:159ML 6CYCLE+158ML
     Route: 042
     Dates: start: 20140423, end: 20140423
  8. PLACEBO [Suspect]
     Active Substance: UNSPECIFIED INGREDIENT
     Indication: NON-SMALL CELL LUNG CANCER
     Dosage: 1APR-1APR14:2CYCLE  23AP-APR14:300MG 3CY  19MA-19MAY14:4CY  5JU-5JUN14:5CY  27JU-27JUN14:330MG 6CY
     Route: 042
     Dates: start: 20140311, end: 20140311

REACTIONS (1)
  - Bone marrow failure [Recovered/Resolved with Sequelae]

NARRATIVE: CASE EVENT DATE: 20140412
